FAERS Safety Report 8746713 (Version 4)
Quarter: 2012Q4

REPORT INFORMATION
  Report Type: Report from Study
  Country: NL (occurrence: NL)
  Receive Date: 20120827
  Receipt Date: 20120918
  Transmission Date: 20130627
  Serious: Yes (Death)
  Sender: FDA-Public Use
  Company Number: NL-B.I. PHARMACEUTICALS,INC./RIDGEFIELD-2012-EU-04248EU

PATIENT
  Age: 71 Year
  Sex: Male
  Weight: 77 kg

DRUGS (6)
  1. DABIGATRAN [Suspect]
     Indication: CEREBROVASCULAR ACCIDENT PROPHYLAXIS
     Route: 048
     Dates: start: 20071212
  2. DABIGATRAN [Suspect]
     Indication: ATRIAL FIBRILLATION
  3. COVERSYL [Concomitant]
     Indication: HYPERTENSION
     Dosage: 8 mg
     Route: 048
     Dates: start: 20060413
  4. SELOKEN ZOC [Concomitant]
     Indication: HEART RATE ABNORMAL
     Dosage: 100 mg
     Route: 048
     Dates: start: 20091227
  5. XYLORIC [Concomitant]
     Indication: GOUT
     Dosage: 300 mg
     Route: 048
     Dates: start: 20110329
  6. PARACETAMOL [Concomitant]
     Indication: PAIN
     Dosage: 3000 mg
     Route: 048
     Dates: start: 20110427

REACTIONS (2)
  - Aortic aneurysm rupture [Fatal]
  - Aortic aneurysm rupture [Fatal]
